FAERS Safety Report 16688288 (Version 2)
Quarter: 2019Q3

REPORT INFORMATION
  Report Type: Report from Study
  Country: US (occurrence: US)
  Receive Date: 20190809
  Receipt Date: 20190819
  Transmission Date: 20191004
  Serious: Yes (Death, Hospitalization)
  Sender: FDA-Public Use
  Company Number: US-ACTELION-A-NJ2019-188279

PATIENT
  Age: 53 Year
  Sex: Male
  Weight: 95.24 kg

DRUGS (4)
  1. UPTRAVI [Suspect]
     Active Substance: SELEXIPAG
     Dosage: UNK
     Route: 048
  2. UPTRAVI [Suspect]
     Active Substance: SELEXIPAG
     Indication: PULMONARY ARTERIAL HYPERTENSION
     Dosage: 400 MCG, BID
     Route: 048
  3. OPSUMIT [Suspect]
     Active Substance: MACITENTAN
     Indication: PULMONARY ARTERIAL HYPERTENSION
     Dosage: 10 MG, QD
     Route: 048
     Dates: start: 201702
  4. UPTRAVI [Suspect]
     Active Substance: SELEXIPAG
     Dosage: 1000 MCG, BID
     Route: 048

REACTIONS (10)
  - Right ventricular failure [Fatal]
  - Pulmonary hypertension [Fatal]
  - Heart rate increased [Unknown]
  - Oedema peripheral [Unknown]
  - Cardio-respiratory arrest [Fatal]
  - General physical health deterioration [Unknown]
  - Palpitations [Unknown]
  - Hypotension [Unknown]
  - Heart rate irregular [Unknown]
  - Condition aggravated [Fatal]

NARRATIVE: CASE EVENT DATE: 20190723
